FAERS Safety Report 8375866-3 (Version None)
Quarter: 2012Q1

REPORT INFORMATION
  Report Type: 
  Country: None (occurrence: None)
  Receive Date: 20120323
  Receipt Date: 20110713
  Transmission Date: 20120608
  Serious: Yes (Hospitalization)
  Sender: FDA-Public Use
  Company Number: 163-21880-11071417

PATIENT
  Age: 70 Year
  Sex: Female
  Weight: 63.05 kg

DRUGS (1)
  1. REVLIMID [Suspect]
     Indication: MULTIPLE MYELOMA
     Dosage: 25 MG, 1 IN 1 D, PO
     Route: 048
     Dates: start: 20110630

REACTIONS (5)
  - DECREASED APPETITE [None]
  - DYSPNOEA [None]
  - ANAEMIA [None]
  - NAUSEA [None]
  - BLOOD GLUCOSE FLUCTUATION [None]
